FAERS Safety Report 8977747 (Version 1)
Quarter: 2012Q4

REPORT INFORMATION
  Report Type: 
  Country: US (occurrence: US)
  Receive Date: 20121219
  Receipt Date: 20121219
  Transmission Date: 20130627
  Serious: Yes (Hospitalization)
  Sender: FDA-Public Use
  Company Number: PHHO2012US017481

PATIENT
  Age: 36 Year
  Sex: Female
  Weight: 91.7 kg

DRUGS (4)
  1. DEXAMETHASONE SANDOZ [Suspect]
     Indication: OEDEMA
     Dosage: 4 mg, QD
     Dates: start: 20120613, end: 20121026
  2. AFINITOR [Suspect]
     Indication: BREAST CANCER METASTATIC
     Dosage: 7.5 mg, QD
     Route: 048
     Dates: start: 20120713, end: 20121025
  3. VINORELBINE [Suspect]
     Indication: BREAST CANCER METASTATIC
     Dosage: 25 mg/m2, QW
     Dates: start: 20120713, end: 20121019
  4. TRASTUZUMAB [Suspect]
     Indication: BREAST CANCER METASTATIC
     Dosage: 2 mg/kg, UNK
     Dates: start: 20120713, end: 20121019

REACTIONS (3)
  - Adrenal insufficiency [Recovered/Resolved]
  - Pyrexia [Not Recovered/Not Resolved]
  - Pain [Not Recovered/Not Resolved]
